FAERS Safety Report 15524678 (Version 2)
Quarter: 2018Q4

REPORT INFORMATION
  Report Type: Spontaneous
  Country: US (occurrence: US)
  Receive Date: 20181018
  Receipt Date: 20181022
  Transmission Date: 20190205
  Serious: No
  Sender: FDA-Public Use
  Company Number: US-PFIZER INC-2018420933

PATIENT
  Age: 65 Year
  Sex: Female
  Weight: 56.69 kg

DRUGS (4)
  1. NEURONTIN [Suspect]
     Active Substance: GABAPENTIN
     Indication: MYALGIA
  2. CYCLOBENZAPRINE. [Concomitant]
     Active Substance: CYCLOBENZAPRINE
  3. NEURONTIN [Suspect]
     Active Substance: GABAPENTIN
     Indication: NECK PAIN
     Dosage: 1200 MG, 4X/DAY [TAKES UP TO 8 NEURONTIN PILLS A DAY/TAKES A TOTAL OF 4800MG A DAY]
     Route: 048
     Dates: end: 201808
  4. NEURONTIN [Suspect]
     Active Substance: GABAPENTIN
     Indication: NEURALGIA

REACTIONS (2)
  - Product use issue [Unknown]
  - Product use in unapproved indication [Unknown]
